FAERS Safety Report 8846950 (Version 1)
Quarter: 2012Q4

REPORT INFORMATION
  Report Type: 
  Country: SE (occurrence: SE)
  Receive Date: 20121018
  Receipt Date: 20121018
  Transmission Date: 20130627
  Serious: Yes (Other)
  Sender: FDA-Public Use
  Company Number: SE-PFIZER INC-2012234650

PATIENT
  Age: 46 Year
  Sex: Male

DRUGS (11)
  1. RAPAMUNE [Suspect]
     Indication: LIVER TRANSPLANT
     Dosage: 2 mg, 1x/day
     Dates: start: 2004
  2. PREDNISOLON [Concomitant]
     Dosage: 10 mg, UNK
     Dates: start: 2004
  3. PREDNISOLON [Concomitant]
     Dosage: 5 mg, UNK
  4. PREDNISOLON [Concomitant]
     Dosage: 2.5 mg, UNK
  5. LYRICA [Concomitant]
     Indication: ANXIETY
     Dosage: 150 mg, daily
  6. LYRICA [Concomitant]
     Dosage: 25 mg, daily
  7. ATENOLOL [Concomitant]
     Indication: HYPERTENSION
     Dosage: 50 mg, UNK
     Dates: start: 1995, end: 201204
  8. ATENOLOL [Concomitant]
     Dosage: 100 mg, UNK
     Dates: start: 201204
  9. FELODIPINE [Concomitant]
     Dosage: 5 mg, UNK
     Dates: start: 1995, end: 201204
  10. FELODIPINE [Concomitant]
     Dosage: 10 mg, UNK
     Dates: start: 201204
  11. STESOLID [Concomitant]
     Dosage: 5 mg, 1-2 times/day

REACTIONS (9)
  - Off label use [Unknown]
  - Renal failure [Not Recovered/Not Resolved]
  - Hypertension [Unknown]
  - Acne [Unknown]
  - Rash erythematous [Unknown]
  - Blood cholesterol increased [Unknown]
  - Drug level increased [Unknown]
  - Lipoma [Unknown]
  - Abdominal distension [Unknown]
